FAERS Safety Report 12608557 (Version 1)
Quarter: 2016Q3

REPORT INFORMATION
  Report Type: Spontaneous
  Country: US (occurrence: US)
  Receive Date: 20160729
  Receipt Date: 20160729
  Transmission Date: 20161109
  Serious: Yes (Other)
  Sender: FDA-Public Use
  Company Number: US-BRISTOL-MYERS SQUIBB COMPANY-BMS-2016-060019

PATIENT
  Sex: Female

DRUGS (1)
  1. SPRYCEL [Suspect]
     Active Substance: DASATINIB
     Indication: CHOLANGIOCARCINOMA
     Dosage: 100 MG, UNK
     Route: 065

REACTIONS (3)
  - Product use issue [Unknown]
  - Platelet transfusion [Unknown]
  - Haemorrhage [Unknown]
